FAERS Safety Report 8845560 (Version 2)
Quarter: 2012Q4

REPORT INFORMATION
  Report Type: Report from Study
  Country: DE (occurrence: DE)
  Receive Date: 20121017
  Receipt Date: 20121024
  Transmission Date: 20130627
  Serious: Yes (Hospitalization)
  Sender: FDA-Public Use
  Company Number: DE-ABBOTT-12P-062-0994008-00

PATIENT
  Age: 73 Year
  Sex: Female
  Weight: 54 kg

DRUGS (2)
  1. HUMIRA [Suspect]
     Indication: RHEUMATOID ARTHRITIS
     Route: 058
     Dates: start: 20030923, end: 20120808
  2. HUMIRA [Suspect]
     Dates: start: 20120830

REACTIONS (5)
  - Urine analysis abnormal [Unknown]
  - Urosepsis [Recovered/Resolved]
  - Pyrexia [Unknown]
  - Dehydration [Unknown]
  - Infection [Unknown]
